FAERS Safety Report 19474859 (Version 1)
Quarter: 2021Q2

REPORT INFORMATION
  Report Type: Spontaneous
  Country: US (occurrence: US)
  Receive Date: 20210629
  Receipt Date: 20210629
  Transmission Date: 20210717
  Serious: No
  Sender: FDA-Public Use
  Company Number: US-SA-2021SA208409

PATIENT
  Sex: Female

DRUGS (9)
  1. PROAIR HFA [Concomitant]
     Active Substance: ALBUTEROL SULFATE
  2. COVID?19 VACCINE [Concomitant]
     Indication: COVID-19 IMMUNISATION
  3. ERYTHROMYCIN. [Concomitant]
     Active Substance: ERYTHROMYCIN
  4. IBUPROFEN. [Concomitant]
     Active Substance: IBUPROFEN
  5. DESONIDE. [Concomitant]
     Active Substance: DESONIDE
  6. BETAMETHASONE DIPROPIONATE. [Concomitant]
     Active Substance: BETAMETHASONE DIPROPIONATE
  7. PENICILLIN G POTASSIUM. [Concomitant]
     Active Substance: PENICILLIN G POTASSIUM
  8. DUPIXENT [Suspect]
     Active Substance: DUPILUMAB
     Indication: DERMATITIS ATOPIC
     Dosage: 300 MG, QOW
     Route: 058
  9. PROTOPIC [Concomitant]
     Active Substance: TACROLIMUS

REACTIONS (7)
  - Oropharyngeal pain [Unknown]
  - Malaise [Unknown]
  - Headache [Unknown]
  - Pulmonary function test decreased [Unknown]
  - Nasopharyngitis [Unknown]
  - Asthma [Unknown]
  - Product use issue [Unknown]
